FAERS Safety Report 9515663 (Version 2)
Quarter: 2013Q4

REPORT INFORMATION
  Report Type: Report from Study
  Country: NL (occurrence: NL)
  Receive Date: 20130911
  Receipt Date: 20131106
  Transmission Date: 20140711
  Serious: Yes (Death)
  Sender: FDA-Public Use
  Company Number: NL-ROCHE-1273887

PATIENT
  Sex: Female

DRUGS (1)
  1. MIRCERA [Suspect]
     Indication: NEPHROGENIC ANAEMIA
     Route: 058
     Dates: start: 20130628, end: 20130903

REACTIONS (1)
  - Cardiac failure chronic [Fatal]
